FAERS Safety Report 7410736-6 (Version None)
Quarter: 2011Q2

REPORT INFORMATION
  Report Type: 
  Country: None (occurrence: None)
  Receive Date: 20110413
  Receipt Date: 20110405
  Transmission Date: 20111010
  Serious: Yes (Hospitalization)
  Sender: FDA-Public Use
  Company Number: US-BRISTOL-MYERS SQUIBB COMPANY-15654460

PATIENT
  Age: 64 Year
  Sex: Male
  Weight: 58 kg

DRUGS (6)
  1. TAXOL [Suspect]
     Indication: NON-SMALL CELL LUNG CANCER
     Dosage: LAST ADMINISTERED DOSE: 28MAR2011.
     Dates: start: 20110228, end: 20110328
  2. FAMOTIDINE [Concomitant]
  3. DECADRON [Suspect]
  4. BLEOMYCIN [Concomitant]
  5. CARBOPLATIN [Suspect]
     Indication: NON-SMALL CELL LUNG CANCER
     Dosage: LAST ADMINISTERED DOSE: 28MAR2011.
     Dates: start: 20110228, end: 20110328
  6. SUCRALFATE [Concomitant]

REACTIONS (6)
  - GASTROINTESTINAL PAIN [None]
  - OESOPHAGITIS [None]
  - OESOPHAGEAL ULCER [None]
  - ODYNOPHAGIA [None]
  - DEHYDRATION [None]
  - LYMPHOCYTE COUNT DECREASED [None]
